FAERS Safety Report 24736940 (Version 1)
Quarter: 2024Q4

REPORT INFORMATION
  Report Type: Spontaneous
  Country: BR (occurrence: BR)
  Receive Date: 20241216
  Receipt Date: 20241216
  Transmission Date: 20250115
  Serious: Yes (Death, Other)
  Sender: LUPIN
  Company Number: BR-LUPIN PHARMACEUTICALS INC.-2024-11944

PATIENT
  Age: 61 Year
  Sex: Female

DRUGS (2)
  1. ZOLPIDEM TARTRATE [Suspect]
     Active Substance: ZOLPIDEM TARTRATE
     Indication: Product used for unknown indication
     Dosage: UNK
     Route: 048
  2. FLUNITRAZEPAM [Suspect]
     Active Substance: FLUNITRAZEPAM
     Indication: Product used for unknown indication
     Dosage: UNK
     Route: 048

REACTIONS (7)
  - Death [Fatal]
  - Cardio-respiratory arrest [Unknown]
  - Toxicity to various agents [Unknown]
  - Intentional overdose [Unknown]
  - Intentional product misuse [Unknown]
  - Lethargy [Unknown]
  - Hypotension [Unknown]
